FAERS Safety Report 8272547-1 (Version None)
Quarter: 2012Q2

REPORT INFORMATION
  Report Type: 
  Country: None (occurrence: None)
  Receive Date: 20120410
  Receipt Date: 20120329
  Transmission Date: 20120825
  Serious: Yes (Hospitalization)
  Sender: FDA-Public Use
  Company Number: BR-ROCHE-1054811

PATIENT
  Sex: Female
  Weight: 60 kg

DRUGS (5)
  1. METHOTREXATE [Concomitant]
  2. ADALAT [Concomitant]
  3. OMEPRAZOLE [Concomitant]
  4. MABTHERA [Suspect]
     Indication: RHEUMATOID ARTHRITIS
     Route: 042
     Dates: start: 20120305, end: 20120326
  5. LOSARTAN POTASSIUM [Concomitant]

REACTIONS (1)
  - GASTRITIS [None]
